FAERS Safety Report 25607488 (Version 1)
Quarter: 2025Q3

REPORT INFORMATION
  Report Type: Spontaneous
  Country: US (occurrence: US)
  Receive Date: 20250725
  Receipt Date: 20250725
  Transmission Date: 20251020
  Serious: Yes (Hospitalization)
  Sender: TEVA
  Company Number: US-TEVA-VS-3353489

PATIENT
  Age: 44 Year
  Sex: Male

DRUGS (1)
  1. UZEDY [Suspect]
     Active Substance: RISPERIDONE
     Indication: Product used for unknown indication
     Dosage: DOSE FORM: INJECTABLE SUSPENSION, FORM STRENGTH: 100/0.28MG/ML
     Route: 065

REACTIONS (1)
  - Thrombosis [Unknown]
